FAERS Safety Report 10055219 (Version 1)
Quarter: 2014Q2

REPORT INFORMATION
  Report Type: Spontaneous
  Country: AT (occurrence: AT)
  Receive Date: 20140403
  Receipt Date: 20140403
  Transmission Date: 20141212
  Serious: Yes (Hospitalization)
  Sender: FDA-Public Use
  Company Number: AT-UCBSA-116580

PATIENT
  Age: 72 Year
  Sex: Male

DRUGS (3)
  1. CIMZIA [Suspect]
     Indication: RHEUMATOID ARTHRITIS
     Dosage: 150MG DOSE PER INTAKE
     Dates: start: 201210
  2. EBETREXAT [Concomitant]
     Indication: RHEUMATOID ARTHRITIS
     Dates: start: 201209
  3. APREDNISOLON [Concomitant]
     Indication: RHEUMATOID ARTHRITIS

REACTIONS (2)
  - Diplopia [Not Recovered/Not Resolved]
  - Eyelid ptosis [Not Recovered/Not Resolved]
